FAERS Safety Report 12035504 (Version 1)
Quarter: 2016Q1

REPORT INFORMATION
  Report Type: Other
  Country: US (occurrence: US)
  Receive Date: 20160207
  Receipt Date: 20160207
  Transmission Date: 20160526
  Serious: Yes (Other)
  Sender: FDA-Public Use
  Company Number: US-ACORDA-ACO_106567_2014

PATIENT
  Sex: Female

DRUGS (4)
  1. COPAXONE [Suspect]
     Active Substance: GLATIRAMER ACETATE
     Indication: PRODUCT USED FOR UNKNOWN INDICATION
     Dosage: UNK
     Route: 065
  2. AMPYRA [Suspect]
     Active Substance: DALFAMPRIDINE
     Dosage: 10MG, QD
     Route: 048
     Dates: start: 201308, end: 201308
  3. AMPYRA [Suspect]
     Active Substance: DALFAMPRIDINE
     Indication: MULTIPLE SCLEROSIS
     Dosage: 10 MG, TWICE DAILY
     Route: 048
     Dates: start: 20110414, end: 201308
  4. AMPYRA [Suspect]
     Active Substance: DALFAMPRIDINE
     Dosage: 10MG,BID
     Route: 048
     Dates: start: 201308

REACTIONS (9)
  - Feeling jittery [None]
  - Fall [Unknown]
  - Inappropriate schedule of drug administration [Recovered/Resolved]
  - Personality change [Unknown]
  - Therapeutic response unexpected [Unknown]
  - Gait disturbance [Unknown]
  - Abasia [Not Recovered/Not Resolved]
  - Peripheral swelling [Recovering/Resolving]
  - Contusion [Unknown]

NARRATIVE: CASE EVENT DATE: 2011
